FAERS Safety Report 9363525 (Version 2)
Quarter: 2013Q3

REPORT INFORMATION
  Report Type: Report from Study
  Country: FR (occurrence: FR)
  Receive Date: 20130624
  Receipt Date: 20130701
  Transmission Date: 20140515
  Serious: Yes (Other)
  Sender: FDA-Public Use
  Company Number: FR-UCBSA-068727

PATIENT
  Age: 65 Year
  Sex: Female
  Weight: 71 kg

DRUGS (10)
  1. CIMZIA [Suspect]
     Indication: RHEUMATOID ARTHRITIS
     Dosage: 400 MG EVERY TWO WEEKS AND THEN 200 MG EVERY TWO WEEKS
     Route: 058
     Dates: start: 20120622, end: 20121021
  2. CYMBALTA [Suspect]
     Indication: DEPRESSION
  3. IMETH [Concomitant]
     Indication: RHEUMATOID ARTHRITIS
     Dosage: 20 MG WEEKLY
     Route: 048
     Dates: start: 20111020, end: 20120801
  4. SPECIAFOLDINE [Concomitant]
     Dosage: 10 MG WEEKLY
     Route: 048
  5. CORTANCYL [Concomitant]
     Indication: RHEUMATOID ARTHRITIS
     Dosage: DAILY DOSE: 7.5 MG
     Route: 048
     Dates: start: 20120210, end: 20120801
  6. CORTANCYL [Concomitant]
     Indication: RHEUMATOID ARTHRITIS
     Dosage: DAILY DOSE: 3 MG
     Dates: start: 20121002
  7. OXYNORMORO [Concomitant]
     Indication: RHEUMATOID ARTHRITIS
     Dosage: DAILY DOSE: 20 MG
     Dates: start: 20120604, end: 2012
  8. OXYCONTIN [Concomitant]
     Indication: RHEUMATOID ARTHRITIS
     Dosage: DAILY DOSE: 10 MG
     Dates: start: 20120604, end: 201206
  9. ACLASTA [Concomitant]
     Indication: OSTEOPOROSIS
     Dosage: 5 MG/YEAR
  10. LEVOTHYROX [Concomitant]
     Indication: HYPOTHYROIDISM
     Dosage: DAILY DOSE: 150 MCG

REACTIONS (1)
  - Papilloma [Recovered/Resolved]
